FAERS Safety Report 7663143-5 (Version None)
Quarter: 2011Q3

REPORT INFORMATION
  Report Type: 
  Country: None (occurrence: None)
  Receive Date: 20110805
  Receipt Date: 20100813
  Transmission Date: 20111222
  Serious: No
  Sender: FDA-Public Use
  Company Number: US-ABBOTT-10P-163-0663857-00

PATIENT
  Sex: Female
  Weight: 89.892 kg

DRUGS (3)
  1. LIPITOR [Concomitant]
     Indication: PRODUCT USED FOR UNKNOWN INDICATION
  2. UNKNOWN MEDICATIONS [Concomitant]
     Indication: PRODUCT USED FOR UNKNOWN INDICATION
  3. NIASPAN [Suspect]
     Indication: HYPERLIPIDAEMIA
     Dates: start: 20070801

REACTIONS (4)
  - FLUSHING [None]
  - PRURITUS [None]
  - RASH [None]
  - ERYTHEMA [None]
